FAERS Safety Report 21880566 (Version 1)
Quarter: 2023Q1

REPORT INFORMATION
  Report Type: Spontaneous
  Country: FR (occurrence: FR)
  Receive Date: 20230118
  Receipt Date: 20230118
  Transmission Date: 20230418
  Serious: Yes (Hospitalization)
  Sender: FDA-Public Use
  Company Number: FR-AMERICAN REGENT INC-2023000121

PATIENT
  Age: 87 Year
  Sex: Male
  Weight: 71 kg

DRUGS (1)
  1. FERINJECT [Suspect]
     Active Substance: FERRIC CARBOXYMALTOSE
     Indication: Iron deficiency anaemia
     Dosage: 1 GRAM
     Route: 042
     Dates: start: 20221226, end: 20221226

REACTIONS (1)
  - Brachiocephalic vein occlusion [Unknown]

NARRATIVE: CASE EVENT DATE: 20221226
